FAERS Safety Report 11836991 (Version 1)
Quarter: 2015Q4

REPORT INFORMATION
  Report Type: Spontaneous
  Country: US (occurrence: None)
  Receive Date: 20151214
  Receipt Date: 20151214
  Transmission Date: 20160305
  Serious: No
  Sender: FDA-Public Use
  Company Number: None

PATIENT
  Age: 63 Year
  Sex: Female

DRUGS (1)
  1. PROLIA [Suspect]
     Active Substance: DENOSUMAB
     Dosage: 60MG Q6M  SUBQ
     Route: 058
     Dates: start: 20141124

REACTIONS (3)
  - Palpitations [None]
  - Pain in jaw [None]
  - Dyspnoea [None]
